FAERS Safety Report 5762132-5 (Version None)
Quarter: 2008Q2

REPORT INFORMATION
  Report Type: 
  Country: None (occurrence: None)
  Receive Date: 20080604
  Receipt Date: 20080523
  Transmission Date: 20081010
  Serious: Yes (Other)
  Sender: FDA-Public Use
  Company Number: 2008JP002406

PATIENT
  Age: 78 Year
  Sex: Male
  Weight: 42.6 kg

DRUGS (9)
  1. VESICARE [Suspect]
     Indication: POLLAKIURIA
     Dosage: 5 MG, UID/QD, ORAL
     Route: 048
     Dates: start: 20080423, end: 20080501
  2. FLIVAS(NAFTOPIDIL) PER ORAL NOS, 25MG [Suspect]
     Indication: POLLAKIURIA
     Dosage: 25 MG, BID, ORAL
     Route: 048
     Dates: start: 20080423, end: 20080501
  3. TAKEPRON (LANSOPRAZOLE) TABLET, 15 MG [Concomitant]
  4. THYRADIN S (LEVOTHYROXINE SODIUM) TABLET, 50 UG [Concomitant]
  5. DIGOXIN (DIGOXIN) TABLET, 0.125 MG [Concomitant]
  6. ALDACTONE-A TABLET, 25 MG [Concomitant]
  7. GASMOTIN (MOSAPRIDE CITRATE) TABLET, 5 MG [Concomitant]
  8. PURSENNID (SENNOSIDE A+B) TABLET [Concomitant]
  9. MAGMITT (MAGNESIUM OXIDE) TABLET, 330 MG [Concomitant]

REACTIONS (4)
  - HYPERCAPNIA [None]
  - HYPOVENTILATION [None]
  - RESPIRATORY ACIDOSIS [None]
  - SOMNOLENCE [None]
